FAERS Safety Report 20564102 (Version 4)
Quarter: 2024Q1

REPORT INFORMATION
  Report Type: Spontaneous
  Country: US (occurrence: US)
  Receive Date: 20220308
  Receipt Date: 20240110
  Transmission Date: 20240409
  Serious: Yes (Disabling)
  Sender: FDA-Public Use
  Company Number: US-ORGANON-O2203USA000475

PATIENT
  Sex: Female

DRUGS (2)
  1. SINGULAIR [Suspect]
     Active Substance: MONTELUKAST SODIUM
     Indication: Asthma
     Dosage: 1 TABLET ONCE A DAY
     Route: 048
     Dates: start: 2010, end: 2020
  2. SINGULAIR [Suspect]
     Active Substance: MONTELUKAST SODIUM
     Indication: Hypersensitivity

REACTIONS (9)
  - Neuropsychological symptoms [Not Recovered/Not Resolved]
  - Homicidal ideation [Not Recovered/Not Resolved]
  - Depression [Recovered/Resolved]
  - Anxiety [Recovered/Resolved]
  - Affective disorder [Not Recovered/Not Resolved]
  - Memory impairment [Recovered/Resolved]
  - Sleep disorder [Not Recovered/Not Resolved]
  - Sleep apnoea syndrome [Unknown]
  - Hypopnoea [Unknown]

NARRATIVE: CASE EVENT DATE: 20100101
